FAERS Safety Report 9925377 (Version 1)
Quarter: 2014Q1

REPORT INFORMATION
  Report Type: Spontaneous
  Country: US (occurrence: None)
  Receive Date: 20140225
  Receipt Date: 20140225
  Transmission Date: 20141002
  Serious: Yes (Other)
  Sender: FDA-Public Use
  Company Number: None

PATIENT
  Age: 51 Year
  Sex: Male
  Weight: 143 kg

DRUGS (1)
  1. HUMULIN R U-500 INSULIN 500 UNITS/ML LILLY [Suspect]
     Indication: DIABETES MELLITUS
     Dosage: 26 UNITS TID SUBCUTANEOUS
     Route: 058

REACTIONS (1)
  - Circumstance or information capable of leading to medication error [None]
